FAERS Safety Report 19724216 (Version 2)
Quarter: 2021Q4

REPORT INFORMATION
  Report Type: Spontaneous
  Country: MM (occurrence: None)
  Receive Date: 20210820
  Receipt Date: 20211031
  Transmission Date: 20220303
  Serious: Yes (Hospitalization)
  Sender: FDA-Public Use
  Company Number: MM-ROCHE-2891986

PATIENT
  Age: 47 Year
  Sex: Female
  Weight: 72.7 kg

DRUGS (1)
  1. ACTEMRA [Suspect]
     Active Substance: TOCILIZUMAB
     Indication: COVID-19 pneumonia
     Route: 042

REACTIONS (2)
  - Lung disorder [Unknown]
  - Off label use [Unknown]
